FAERS Safety Report 4514629-3 (Version None)
Quarter: 2004Q3

REPORT INFORMATION
  Report Type: 
  Country: None (occurrence: None)
  Receive Date: 20040927
  Receipt Date: 20040224
  Transmission Date: 20050211
  Serious: No
  Sender: FDA-Public Use
  Company Number: US067897

PATIENT
  Sex: Female
  Weight: 68.1 kg

DRUGS (8)
  1. NEULASTA [Suspect]
     Indication: CHEMOTHERAPY
     Dosage: 6 MG, 1 IN 3 WEEKS, SC
     Route: 058
     Dates: start: 20040130, end: 20040220
  2. DEXAMETHASONE [Concomitant]
  3. DOXORUBICIN HCL [Concomitant]
  4. CYCLOPHOSPHAMIDE [Concomitant]
  5. DOCETAXEL [Concomitant]
  6. ATORVASTATIN CALCIUM [Concomitant]
  7. PAROXETINE HYDROCHLORIDE [Concomitant]
  8. ROFECOXIB [Concomitant]

REACTIONS (1)
  - INJECTION SITE REACTION [None]
